FAERS Safety Report 19752832 (Version 3)
Quarter: 2022Q1

REPORT INFORMATION
  Report Type: Report from Study
  Country: CA (occurrence: CA)
  Receive Date: 20210826
  Receipt Date: 20220207
  Transmission Date: 20220423
  Serious: Yes (Other)
  Sender: FDA-Public Use
  Company Number: CA-CELGENE-CAN-20210301803

PATIENT
  Sex: Male

DRUGS (6)
  1. REVLIMID [Suspect]
     Active Substance: LENALIDOMIDE
     Indication: Plasma cell myeloma
     Dosage: 10 MILLIGRAM
     Route: 048
     Dates: start: 20200930
  2. REVLIMID [Suspect]
     Active Substance: LENALIDOMIDE
     Dosage: 5 MILLIGRAM
     Route: 048
     Dates: start: 20200930
  3. REVLIMID [Suspect]
     Active Substance: LENALIDOMIDE
     Dosage: 10 MILLIGRAM
     Route: 048
     Dates: start: 20210812
  4. DEXAMETHASONE [Concomitant]
     Active Substance: DEXAMETHASONE
     Indication: Product used for unknown indication
     Route: 065
  5. IXAZOMIB [Concomitant]
     Active Substance: IXAZOMIB
     Indication: Product used for unknown indication
     Route: 065
  6. Bone strenghtner [Concomitant]
     Indication: Product used for unknown indication
     Route: 065

REACTIONS (12)
  - Platelet count decreased [Unknown]
  - Haemorrhage [Unknown]
  - Blood testosterone decreased [Unknown]
  - Weight increased [Unknown]
  - Blood pressure fluctuation [Unknown]
  - Taste disorder [Unknown]
  - Full blood count decreased [Unknown]
  - Fatigue [Unknown]
  - Depressed mood [Unknown]
  - Dizziness [Unknown]
  - Plasma cell myeloma [Unknown]
  - Contusion [Unknown]
